FAERS Safety Report 18443070 (Version 1)
Quarter: 2020Q4

REPORT INFORMATION
  Report Type: Spontaneous
  Country: US (occurrence: US)
  Receive Date: 20201030
  Receipt Date: 20201030
  Transmission Date: 20210114
  Serious: Yes (Other)
  Sender: FDA-Public Use
  Company Number: US-CIPLA LTD.-2020US07649

PATIENT

DRUGS (1)
  1. TOPIRAMATE. [Suspect]
     Active Substance: TOPIRAMATE
     Indication: PRODUCT USED FOR UNKNOWN INDICATION
     Dosage: 25 MG, UNK, ONE YEAR AGO
     Route: 048

REACTIONS (5)
  - Intentional product use issue [Unknown]
  - Blindness [Unknown]
  - Eye disorder [Unknown]
  - Lacrimation increased [Unknown]
  - Hypersensitivity [Unknown]
